FAERS Safety Report 14221530 (Version 2)
Quarter: 2018Q1

REPORT INFORMATION
  Report Type: Spontaneous
  Country: US (occurrence: US)
  Receive Date: 20171123
  Receipt Date: 20180119
  Transmission Date: 20180508
  Serious: No
  Sender: FDA-Public Use
  Company Number: US-JNJFOC-20161010196

PATIENT
  Age: 9 Month
  Sex: Male

DRUGS (4)
  1. RISPERDAL [Suspect]
     Active Substance: RISPERIDONE
     Indication: ATTENTION DEFICIT/HYPERACTIVITY DISORDER
     Dosage: IN VARYING DOSE OF 0.25 AND 0.5 MG
     Route: 048
     Dates: start: 20080401, end: 20081222
  2. RISPERIDONE. [Suspect]
     Active Substance: RISPERIDONE
     Indication: PRODUCT USED FOR UNKNOWN INDICATION
     Route: 048
     Dates: end: 2008
  3. RISPERDAL [Suspect]
     Active Substance: RISPERIDONE
     Indication: ASTHMA
     Dosage: IN VARYING DOSE OF 0.25 AND 0.5 MG
     Route: 048
     Dates: start: 20080401, end: 20081222
  4. INVEGA [Suspect]
     Active Substance: PALIPERIDONE
     Indication: ATTENTION DEFICIT/HYPERACTIVITY DISORDER
     Route: 048
     Dates: start: 200503

REACTIONS (4)
  - Off label use [Unknown]
  - Gynaecomastia [Unknown]
  - Product use in unapproved indication [Unknown]
  - Emotional distress [Unknown]

NARRATIVE: CASE EVENT DATE: 200503
